FAERS Safety Report 7374562-9 (Version None)
Quarter: 2011Q1

REPORT INFORMATION
  Report Type: 
  Country: None (occurrence: None)
  Receive Date: 20110325
  Receipt Date: 20100316
  Transmission Date: 20110831
  Serious: No
  Sender: FDA-Public Use
  Company Number: US-MYLANLABS-2010S1004632

PATIENT
  Age: 46 Year
  Sex: Female

DRUGS (2)
  1. FENTANYL-100 [Suspect]
     Indication: FIBROMYALGIA
     Dosage: Q72HR
     Route: 062
     Dates: start: 20090101, end: 20100305
  2. FENTANYL-100 [Suspect]
     Dosage: Q72HR
     Route: 062
     Dates: start: 20100305

REACTIONS (3)
  - HOT FLUSH [None]
  - HYPERHIDROSIS [None]
  - DRUG EFFECT DECREASED [None]
